FAERS Safety Report 16862460 (Version 1)
Quarter: 2019Q3

REPORT INFORMATION
  Report Type: Spontaneous
  Country: US (occurrence: US)
  Receive Date: 20190927
  Receipt Date: 20190927
  Transmission Date: 20191005
  Serious: Yes (Hospitalization)
  Sender: FDA-Public Use
  Company Number: US-TEVA-2019-US-1115100

PATIENT
  Age: 29 Year
  Sex: Male

DRUGS (4)
  1. DIVALPROEX SODIUM. [Suspect]
     Active Substance: DIVALPROEX SODIUM
  2. BUPROPION SUSTAINED RELEASE (BUPROPION) [Suspect]
     Active Substance: BUPROPION
  3. ZIPRASIDONE. [Suspect]
     Active Substance: ZIPRASIDONE
  4. FLUOXETINE [Suspect]
     Active Substance: FLUOXETINE HYDROCHLORIDE

REACTIONS (10)
  - Sinus tachycardia [Unknown]
  - Lethargy [Unknown]
  - Epilepsy [Unknown]
  - Disorientation [Unknown]
  - Overdose [Unknown]
  - Supraventricular tachycardia [Unknown]
  - Generalised tonic-clonic seizure [Unknown]
  - Hallucination, visual [Unknown]
  - Atrial fibrillation [Unknown]
  - Electrocardiogram QT prolonged [Unknown]
